FAERS Safety Report 25728873 (Version 2)
Quarter: 2025Q3

REPORT INFORMATION
  Report Type: Other
  Country: US (occurrence: US)
  Receive Date: 20250826
  Receipt Date: 20250905
  Transmission Date: 20251021
  Serious: Yes (unspecified)
  Sender: QUALGEN - No Location Specified
  Company Number: US-Qualgen-2183273

PATIENT
  Age: 65 Year
  Sex: Female

DRUGS (1)
  1. TESTOSTERONE [Suspect]
     Active Substance: TESTOSTERONE
     Dates: start: 20250422

REACTIONS (1)
  - Implant site infection [Recovered/Resolved]

NARRATIVE: CASE EVENT DATE: 20250422
